FAERS Safety Report 8065762-3 (Version None)
Quarter: 2012Q1

REPORT INFORMATION
  Report Type: 
  Country: None (occurrence: None)
  Receive Date: 20120124
  Receipt Date: 20120118
  Transmission Date: 20120608
  Serious: Yes (Other)
  Sender: FDA-Public Use
  Company Number: US-PFIZER INC-2012015017

PATIENT
  Sex: Female
  Weight: 79.4 kg

DRUGS (2)
  1. PRISTIQ [Concomitant]
     Dosage: UNK
  2. PREMARIN [Suspect]
     Indication: OESTROGEN REPLACEMENT THERAPY
     Dosage: 1.25 MG, 1X/DAY
     Route: 048
     Dates: start: 19711001

REACTIONS (4)
  - SLEEP DISORDER [None]
  - MIGRAINE [None]
  - BLADDER SPASM [None]
  - MULTIPLE SCLEROSIS [None]
